FAERS Safety Report 19608088 (Version 3)
Quarter: 2021Q3

REPORT INFORMATION
  Report Type: Report from Study
  Country: US (occurrence: US)
  Receive Date: 20210726
  Receipt Date: 20210927
  Transmission Date: 20211014
  Serious: Yes (Other)
  Sender: FDA-Public Use
  Company Number: US-INSMED, INC.-US-INS-20-02393

PATIENT
  Age: 79 Year
  Sex: Female

DRUGS (3)
  1. ARIKAYCE [Suspect]
     Active Substance: AMIKACIN
     Dosage: 590 MILLIGRAM, QD
     Route: 055
  2. ARIKAYCE [Suspect]
     Active Substance: AMIKACIN
     Dosage: 590 MILLIGRAM, QOD
     Route: 055
  3. ARIKAYCE [Suspect]
     Active Substance: AMIKACIN
     Indication: MYCOBACTERIUM AVIUM COMPLEX INFECTION
     Dosage: 590 MILLIGRAM, QD
     Route: 055
     Dates: start: 202012, end: 20201222

REACTIONS (15)
  - Throat irritation [Unknown]
  - Laryngitis [Unknown]
  - Pulmonary haemorrhage [Unknown]
  - Asthenia [Unknown]
  - Pulmonary pain [Unknown]
  - Fatigue [Unknown]
  - Off label use [Unknown]
  - Haemoptysis [Unknown]
  - Orthopnoea [Unknown]
  - Productive cough [Unknown]
  - Larynx irritation [Unknown]
  - Dyspnoea [Unknown]
  - Cough [Recovering/Resolving]
  - Drug ineffective [Unknown]
  - Therapy interrupted [Unknown]

NARRATIVE: CASE EVENT DATE: 20201221
